FAERS Safety Report 8922439 (Version 4)
Quarter: 2012Q4

REPORT INFORMATION
  Report Type: 
  Country: GB (occurrence: GB)
  Receive Date: 20121126
  Receipt Date: 20121220
  Transmission Date: 20130627
  Serious: Yes (Other)
  Sender: FDA-Public Use
  Company Number: GB-JNJFOC-20121111228

PATIENT
  Age: 70 Year
  Sex: Female
  Weight: 72.2 kg

DRUGS (21)
  1. LOPERAMIDE [Suspect]
     Indication: DIARRHOEA
     Route: 065
  2. LOPERAMIDE [Suspect]
     Indication: GASTRINOMA
     Route: 065
  3. LOPERAMIDE [Suspect]
     Indication: FUNCTIONAL GASTROINTESTINAL DISORDER
     Route: 065
  4. IBUPROFEN [Suspect]
     Indication: PATENT DUCTUS ARTERIOSUS
     Route: 065
  5. IBUPROFEN [Suspect]
     Indication: PERICARDITIS
     Route: 065
  6. IBUPROFEN [Suspect]
     Indication: DYSMENORRHOEA
     Route: 065
  7. IBUPROFEN [Suspect]
     Indication: PAIN
     Route: 065
  8. IBUPROFEN [Suspect]
     Indication: PYREXIA
     Route: 065
  9. IBUPROFEN [Suspect]
     Indication: RHEUMATOID ARTHRITIS
     Route: 065
  10. ATORVASTATIN [Suspect]
     Indication: PROPHYLAXIS
     Route: 065
  11. ATORVASTATIN [Suspect]
     Indication: DYSLIPIDAEMIA
     Route: 065
  12. CARBAMAZEPINE [Suspect]
     Indication: NEURALGIA
     Route: 065
  13. CARBAMAZEPINE [Suspect]
     Indication: CONVULSION
     Route: 065
  14. ISOSORBIDE MONONITRATE [Suspect]
     Indication: ISCHAEMIC HEART DISEASE PROPHYLAXIS
     Route: 065
  15. GLYCERYL TRINITRATE [Suspect]
     Indication: ISCHAEMIC HEART DISEASE PROPHYLAXIS
     Route: 060
  16. LANSOPRAZOLE [Suspect]
     Indication: GASTRINOMA
     Route: 065
  17. LANSOPRAZOLE [Suspect]
     Indication: GASTROOESOPHAGEAL REFLUX DISEASE
     Route: 065
  18. LANSOPRAZOLE [Suspect]
     Indication: ULCER
     Route: 065
  19. LANSOPRAZOLE [Suspect]
     Indication: GASTRIC ULCER
     Route: 065
  20. LANSOPRAZOLE [Suspect]
     Indication: DUODENAL ULCER
     Route: 065
  21. METFORMIN [Suspect]
     Indication: TYPE 2 DIABETES MELLITUS
     Route: 065

REACTIONS (1)
  - Colitis microscopic [Not Recovered/Not Resolved]
